FAERS Safety Report 4927993-8 (Version None)
Quarter: 2006Q1

REPORT INFORMATION
  Report Type: 
  Country: None (occurrence: None)
  Receive Date: 20060131
  Receipt Date: 20051102
  Transmission Date: 20060701
  Serious: Yes (Hospitalization)
  Sender: FDA-Public Use
  Company Number: 200519100US

PATIENT
  Age: 32 Year
  Sex: Male

DRUGS (1)
  1. KETEK [Suspect]
     Indication: SINUSITIS
     Dosage: PO
     Route: 048

REACTIONS (1)
  - HEPATIC ENZYME INCREASED [None]
